FAERS Safety Report 5235301-0 (Version None)
Quarter: 2007Q1

REPORT INFORMATION
  Report Type: 
  Country: None (occurrence: None)
  Receive Date: 20070207
  Receipt Date: 20070207
  Transmission Date: 20070707
  Serious: No
  Sender: FDA-Public Use
  Company Number: None

PATIENT
  Age: 66 Year
  Sex: Male
  Weight: 136.1 kg

DRUGS (5)
  1. PRAVASTATIN [Suspect]
  2. LANOXIN [Concomitant]
  3. TAMSULOSIN HCL [Concomitant]
  4. DILTIAZEM (INWOOD) [Concomitant]
  5. GEMFIBROZIL [Concomitant]

REACTIONS (1)
  - MYALGIA [None]
